FAERS Safety Report 9553152 (Version 1)
Quarter: 2013Q2

REPORT INFORMATION
  Report Type: Spontaneous
  Country: US (occurrence: None)
  Receive Date: 20130507
  Receipt Date: 20130507
  Transmission Date: 20140414
  Serious: Yes (Hospitalization, Other)
  Sender: FDA-Public Use
  Company Number: PHEH2012US013136

PATIENT
  Sex: Male

DRUGS (1)
  1. TASIGNA (AMN107) CAPSULE, 200MG [Suspect]
     Indication: CHRONIC MYELOID LEUKAEMIA
     Route: 048

REACTIONS (7)
  - Tumour lysis syndrome [None]
  - Renal failure [None]
  - Chronic myeloid leukaemia [None]
  - Haemoglobin decreased [None]
  - Drug ineffective [None]
  - White blood cell count increased [None]
  - Platelet count decreased [None]
